FAERS Safety Report 7476339-2 (Version None)
Quarter: 2011Q2

REPORT INFORMATION
  Report Type: 
  Country: None (occurrence: None)
  Receive Date: 20110512
  Receipt Date: 20110503
  Transmission Date: 20111010
  Serious: Yes (Hospitalization)
  Sender: FDA-Public Use
  Company Number: A0799512A

PATIENT
  Age: 51 Year
  Sex: Male
  Weight: 93.2 kg

DRUGS (15)
  1. VASOTEC [Concomitant]
  2. LEVEMIR [Concomitant]
  3. STARLIX [Concomitant]
  4. TOPROL-XL [Concomitant]
  5. ASPIRIN [Concomitant]
  6. COREG [Concomitant]
  7. INSULIN [Concomitant]
  8. GLYBURIDE [Concomitant]
  9. GLIMEPIRIDE [Concomitant]
  10. AVANDIA [Suspect]
     Indication: DIABETES MELLITUS
     Dosage: 8MG PER DAY
     Route: 048
     Dates: end: 20070615
  11. LIPITOR [Concomitant]
  12. OMACOR [Concomitant]
  13. MAVIK [Concomitant]
  14. GLUCOPHAGE [Concomitant]
  15. ATENOLOL [Concomitant]

REACTIONS (3)
  - MYOCARDIAL INFARCTION [None]
  - CORONARY ARTERY DISEASE [None]
  - ISCHAEMIC CARDIOMYOPATHY [None]
